FAERS Safety Report 18234779 (Version 1)
Quarter: 2020Q3

REPORT INFORMATION
  Report Type: Report from Study
  Country: None (occurrence: US)
  Receive Date: 20200904
  Receipt Date: 20200904
  Transmission Date: 20201103
  Serious: Yes (Other)
  Sender: FDA-Public Use
  Company Number: US-ABBVIE-20K-163-3510228-00

PATIENT
  Age: 52 Year
  Sex: Female
  Weight: 65.83 kg

DRUGS (1)
  1. HUMIRA [Suspect]
     Active Substance: ADALIMUMAB
     Indication: CROHN^S DISEASE
     Route: 058
     Dates: start: 201904

REACTIONS (5)
  - Surgery [Not Recovered/Not Resolved]
  - Illness [Not Recovered/Not Resolved]
  - Gastrointestinal inflammation [Recovering/Resolving]
  - Food intolerance [Not Recovered/Not Resolved]
  - White blood cell count increased [Recovering/Resolving]

NARRATIVE: CASE EVENT DATE: 202006
